FAERS Safety Report 4451162-1 (Version None)
Quarter: 2004Q3

REPORT INFORMATION
  Report Type: 
  Country: None (occurrence: None)
  Receive Date: 20040913
  Receipt Date: 20040610
  Transmission Date: 20050211
  Serious: No
  Sender: FDA-Public Use
  Company Number: 2004-BP-04586BP (0)

PATIENT
  Sex: Female

DRUGS (7)
  1. SPIRIVA [Suspect]
     Indication: CHRONIC OBSTRUCTIVE AIRWAYS DISEASE
     Dosage: 18 MCG (18 MCG), IH
     Route: 055
     Dates: start: 20040609
  2. THEOPHYLLINE [Concomitant]
  3. VERAPAMIL [Concomitant]
  4. LANOXIN [Concomitant]
  5. ATIVAN [Concomitant]
  6. XOPENEX [Concomitant]
  7. SYNTHROID [Concomitant]

REACTIONS (3)
  - DIZZINESS [None]
  - PALPITATIONS [None]
  - VISION BLURRED [None]
